FAERS Safety Report 24619399 (Version 7)
Quarter: 2025Q1

REPORT INFORMATION
  Report Type: Spontaneous
  Country: IL (occurrence: IL)
  Receive Date: 20241114
  Receipt Date: 20250218
  Transmission Date: 20250408
  Serious: No
  Sender: PFIZER
  Company Number: IL-PFIZER INC-PV202400119901

PATIENT
  Age: 13 Year
  Sex: Male

DRUGS (3)
  1. NGENLA [Suspect]
     Active Substance: SOMATROGON-GHLA
     Dosage: 60 MG, WEEKLY
  2. NGENLA [Suspect]
     Active Substance: SOMATROGON-GHLA
     Dosage: 20MG, WEEKLY (INCREASE THE DOSE EACH TIME IN 5MG UNTIL THEY WILL REACH THE DOSE OF 30)
  3. NGENLA [Suspect]
     Active Substance: SOMATROGON-GHLA
     Dosage: 60 MG, WEEKLY
     Dates: start: 20250105

REACTIONS (6)
  - Injection site pain [Unknown]
  - Headache [Unknown]
  - Pain in extremity [Unknown]
  - Injection site pain [Unknown]
  - Injection site haemorrhage [Unknown]
  - Incorrect dose administered [Unknown]
